FAERS Safety Report 5166178-X (Version None)
Quarter: 2006Q4

REPORT INFORMATION
  Report Type: 
  Country: None (occurrence: None)
  Receive Date: 20061129
  Receipt Date: 20061117
  Transmission Date: 20070319
  Serious: Yes (Other)
  Sender: FDA-Public Use
  Company Number: 2006142916

PATIENT
  Age: 16 Year
  Sex: Female

DRUGS (1)
  1. GEODON [Suspect]
     Indication: BIPOLAR DISORDER
     Dosage: 20 MG (20 MG, 1 IN 1 D)   2 WEEKS AGO
     Dates: end: 20060101

REACTIONS (6)
  - ANXIETY [None]
  - FATIGUE [None]
  - FEELING DRUNK [None]
  - FEELING JITTERY [None]
  - LETHARGY [None]
  - PANIC ATTACK [None]
